FAERS Safety Report 7983506-8 (Version None)
Quarter: 2011Q4

REPORT INFORMATION
  Report Type: 
  Country: None (occurrence: None)
  Receive Date: 20111215
  Receipt Date: 20111208
  Transmission Date: 20120403
  Serious: Yes (Hospitalization)
  Sender: FDA-Public Use
  Company Number: GB-GILEAD-2011-0047840

PATIENT
  Age: 45 Year
  Sex: Male

DRUGS (2)
  1. OMEPRAZOLE [Concomitant]
     Indication: GASTROOESOPHAGEAL REFLUX DISEASE
     Route: 048
  2. ATRIPLA [Suspect]
     Indication: HIV INFECTION
     Dosage: AT NIGHT.
     Route: 048
     Dates: start: 20110101

REACTIONS (3)
  - CHOLECYSTITIS [None]
  - PANCREATITIS [None]
  - ABDOMINAL PAIN UPPER [None]
